FAERS Safety Report 16110156 (Version 3)
Quarter: 2023Q1

REPORT INFORMATION
  Report Type: Report from Study
  Country: PT (occurrence: PT)
  Receive Date: 20190325
  Receipt Date: 20230225
  Transmission Date: 20230418
  Serious: Yes (Life-Threatening, Hospitalization, Other)
  Sender: FDA-Public Use
  Company Number: PT-GKKIN-20181004-PI526058-5

PATIENT
  Age: 7 Year
  Sex: Female

DRUGS (1)
  1. AMOXICILLIN\CLAVULANIC ACID [Suspect]
     Active Substance: AMOXICILLIN\CLAVULANIC ACID
     Indication: Antibiotic therapy
     Dosage: UNK
     Route: 065

REACTIONS (8)
  - Anaphylactic reaction [Recovered/Resolved]
  - Urticaria [Recovered/Resolved]
  - Face oedema [Recovered/Resolved]
  - Conjunctivitis [Recovered/Resolved]
  - Cough [Recovered/Resolved]
  - Dysphonia [Recovered/Resolved]
  - Abdominal pain [Recovered/Resolved]
  - Rhinitis [Recovered/Resolved]
